FAERS Safety Report 6283688-2 (Version None)
Quarter: 2009Q3

REPORT INFORMATION
  Report Type: 
  Country: None (occurrence: None)
  Receive Date: 20090724
  Receipt Date: 20090522
  Transmission Date: 20100115
  Serious: No
  Sender: FDA-Public Use
  Company Number: US-ALEXION-A200900415

PATIENT
  Sex: Female
  Weight: 54.422 kg

DRUGS (13)
  1. SOLIRIS [Suspect]
     Indication: PAROXYSMAL NOCTURNAL HAEMOGLOBINURIA
     Dosage: 600 MG, QW
     Route: 042
     Dates: start: 20090521
  2. PROTONIX                           /01263201/ [Concomitant]
     Dosage: 40 MG, QD
  3. LASIX [Concomitant]
     Dosage: 20 MG, QD
  4. PERCOCET [Concomitant]
     Dosage: 5/325 Q4H, PRN
  5. OXYCONTIN [Concomitant]
     Dosage: 20 MG, Q12H
  6. SPIRONOLACTONE [Concomitant]
     Dosage: 50 MG, QD
  7. SONATA                             /01454001/ [Concomitant]
     Dosage: 5 MG, QHS
  8. PROPRANOLOL [Concomitant]
     Dosage: 10 MG, Q12H
  9. LOVENOX [Concomitant]
     Dosage: 0.7 MG, BID
  10. PHENERGAN HCL [Concomitant]
     Indication: NAUSEA
     Dosage: 25 MG, Q6H, PRN
  11. IRON SULFATETHIAMIN COMPOUND TAB [Concomitant]
     Dosage: 150 MG, QD
  12. FOLIC ACID [Concomitant]
     Dosage: 1 MG, QD
  13. DULCOLAX                           /00064401/ [Concomitant]
     Dosage: UNK

REACTIONS (2)
  - NAUSEA [None]
  - VOMITING [None]
